FAERS Safety Report 6159749-5 (Version None)
Quarter: 2009Q2

REPORT INFORMATION
  Report Type: 
  Country: None (occurrence: None)
  Receive Date: 20090420
  Receipt Date: 20090413
  Transmission Date: 20091009
  Serious: Yes (Other)
  Sender: FDA-Public Use
  Company Number: US-BIOGENIDEC-2008BI030573

PATIENT
  Age: 19 Year
  Sex: Female

DRUGS (3)
  1. AVONEX [Suspect]
     Indication: MULTIPLE SCLEROSIS
     Route: 030
     Dates: start: 20071214, end: 20080215
  2. AVONEX [Suspect]
     Route: 030
     Dates: start: 20081217
  3. BACLOFEN [Concomitant]
     Dates: end: 20080201

REACTIONS (6)
  - ABASIA [None]
  - ABNORMAL LABOUR [None]
  - DYSPEPSIA [None]
  - NAUSEA [None]
  - VISION BLURRED [None]
  - VISUAL ACUITY REDUCED [None]
